FAERS Safety Report 12703073 (Version 3)
Quarter: 2016Q3

REPORT INFORMATION
  Report Type: Spontaneous
  Country: US (occurrence: US)
  Receive Date: 20160831
  Receipt Date: 20160908
  Transmission Date: 20161109
  Serious: No
  Sender: FDA-Public Use
  Company Number: US-GLAXOSMITHKLINE-US2016126462

PATIENT
  Sex: Male

DRUGS (1)
  1. NICORETTE [Suspect]
     Active Substance: NICOTINE
     Indication: TOBACCO USER
     Dosage: UNK
     Dates: start: 20160802, end: 20160820

REACTIONS (2)
  - Nausea [Recovered/Resolved]
  - Intentional product misuse [Unknown]
